FAERS Safety Report 25873372 (Version 2)
Quarter: 2025Q4

REPORT INFORMATION
  Report Type: Spontaneous
  Country: US (occurrence: US)
  Receive Date: 20251002
  Receipt Date: 20251009
  Transmission Date: 20260118
  Serious: Yes (Hospitalization)
  Sender: ROCHE
  Company Number: US-ROCHE-10000401237

PATIENT
  Age: 4 Decade
  Sex: Female

DRUGS (3)
  1. BEVACIZUMAB [Suspect]
     Active Substance: BEVACIZUMAB
     Indication: Cervix carcinoma recurrent
     Dosage: TOTAL OF SIX TREATMENT
     Route: 065
  2. CARBOPLATIN [Concomitant]
     Active Substance: CARBOPLATIN
     Dosage: TOTAL OF SIX TREATMENT
     Route: 065
  3. PACLITAXEL [Concomitant]
     Active Substance: PACLITAXEL
     Dosage: TOTAL OF SIX TREATMENT
     Route: 065

REACTIONS (2)
  - Enterocutaneous fistula [Not Recovered/Not Resolved]
  - Female genital tract fistula [Not Recovered/Not Resolved]
